FAERS Safety Report 9166315 (Version 3)
Quarter: 2013Q4

REPORT INFORMATION
  Report Type: Report from Study
  Country: JP (occurrence: JP)
  Receive Date: 20130315
  Receipt Date: 20131227
  Transmission Date: 20140711
  Serious: Yes (Other)
  Sender: FDA-Public Use
  Company Number: JP-AMGEN-JPNCT2013018037

PATIENT
  Age: 84 Year
  Sex: Female
  Weight: 41 kg

DRUGS (9)
  1. DARBEPOETIN ALFA [Suspect]
     Indication: NEPHROGENIC ANAEMIA
     Dosage: 30 MUG, QD
     Route: 058
     Dates: start: 20120809, end: 20121002
  2. BLOPRESS [Concomitant]
     Dosage: UNK
     Route: 048
  3. NORVASC [Concomitant]
     Dosage: UNK
     Route: 048
  4. LASIX [Concomitant]
     Dosage: UNK
     Route: 048
  5. RASILEZ [Concomitant]
     Dosage: UNK
     Route: 048
  6. ZYLORIC [Concomitant]
     Dosage: UNK
     Route: 048
  7. CALTAN [Concomitant]
     Dosage: UNK
     Route: 048
  8. KREMEZIN [Concomitant]
     Dosage: UNK
     Route: 048
  9. PURSENNID [Concomitant]
     Indication: CONSTIPATION
     Dosage: UNK
     Route: 048

REACTIONS (2)
  - Cardiac failure congestive [Recovered/Resolved]
  - Renal failure chronic [Recovered/Resolved]
